FAERS Safety Report 6139344-4 (Version None)
Quarter: 2009Q2

REPORT INFORMATION
  Report Type: 
  Country: None (occurrence: None)
  Receive Date: 20090401
  Receipt Date: 20090323
  Transmission Date: 20091009
  Serious: Yes (Death)
  Sender: FDA-Public Use
  Company Number: EG-ROCHE-623086

PATIENT

DRUGS (1)
  1. CAPECITABINE [Suspect]
     Indication: RECTAL CANCER
     Dosage: ONLY ON RADIOTHERAPY DAYS
     Route: 048

REACTIONS (1)
  - METASTASES TO LUNG [None]
